FAERS Safety Report 9710557 (Version 1)
Quarter: 2013Q4

REPORT INFORMATION
  Report Type: Spontaneous
  Country: US (occurrence: None)
  Receive Date: 20131125
  Receipt Date: 20131125
  Transmission Date: 20140711
  Serious: Yes (Other)
  Sender: FDA-Public Use
  Company Number: None

PATIENT
  Age: 72 None
  Sex: Male

DRUGS (5)
  1. XARELTO [Suspect]
     Indication: ATRIAL FIBRILLATION
     Dates: start: 20130206, end: 20130310
  2. NORVASC [Concomitant]
  3. CORDARONE [Concomitant]
  4. NIACIN [Concomitant]
  5. GLUCOSAMINE [Concomitant]

REACTIONS (2)
  - Throat irritation [None]
  - Pharyngeal erythema [None]
